FAERS Safety Report 16969619 (Version 4)
Quarter: 2025Q3

REPORT INFORMATION
  Report Type: Spontaneous
  Country: EU (occurrence: EU)
  Receive Date: 20191029
  Receipt Date: 20250911
  Transmission Date: 20251020
  Serious: Yes (Hospitalization, Other)
  Sender: TORRENT PHARMA INC.
  Company Number: None

PATIENT
  Age: 89 Year
  Sex: Female

DRUGS (19)
  1. QUETIAPINE [Suspect]
     Active Substance: QUETIAPINE
     Indication: Depression
     Route: 065
  2. CITALOPRAM [Suspect]
     Active Substance: CITALOPRAM
     Indication: Depression
  3. DIPYRONE [Suspect]
     Active Substance: DIPYRONE
     Indication: Pain
     Route: 042
  4. LORAZEPAM [Suspect]
     Active Substance: LORAZEPAM
     Indication: Depression
     Route: 048
  5. MEPERIDINE [Suspect]
     Active Substance: MEPERIDINE
     Indication: Pain
     Route: 042
  6. ACETAMINOPHEN [Suspect]
     Active Substance: ACETAMINOPHEN
     Indication: Pain
     Route: 065
  7. CITALOPRAM [Interacting]
     Active Substance: CITALOPRAM
     Indication: Depression
     Route: 065
  8. MIRTAZAPINE [Interacting]
     Active Substance: MIRTAZAPINE
     Indication: Depression
     Route: 065
  9. TOLPERISONE HYDROCHLORIDE [Interacting]
     Active Substance: TOLPERISONE HYDROCHLORIDE
     Indication: Pain
     Route: 048
  10. OXYCONTIN [Interacting]
     Active Substance: OXYCODONE HYDROCHLORIDE
     Indication: Pain
     Route: 048
  11. MEPERIDINE [Interacting]
     Active Substance: MEPERIDINE
     Indication: Pain
     Route: 042
  12. CEFEPIME [Concomitant]
     Active Substance: CEFEPIME HYDROCHLORIDE
     Indication: Product used for unknown indication
     Route: 042
  13. DAFALGAN [Concomitant]
     Active Substance: ACETAMINOPHEN
     Indication: Pain
     Route: 042
  14. DIAZEPAM [Concomitant]
     Active Substance: DIAZEPAM
     Indication: Product used for unknown indication
     Dosage: 5 MG, SEVERAL TIMES DAILY AS NEEDED
     Route: 054
  15. FENTANYL [Concomitant]
     Active Substance: FENTANYL
     Indication: Pain
     Route: 065
  16. HALOPERIDOL [Concomitant]
     Active Substance: HALOPERIDOL
     Indication: Product used for unknown indication
     Route: 065
  17. magnesium (unspecified)/potassium (unspecified) [Concomitant]
     Indication: Hypokalaemia
     Route: 065
  18. FOSFOMYCIN TROMETHAMINE [Concomitant]
     Active Substance: FOSFOMYCIN TROMETHAMINE
     Indication: Escherichia infection
     Route: 065
  19. Novaglin (dipyrone) [Concomitant]
     Indication: Pain
     Dosage: 2.5 G AT 2-4 ML/H, 2.5-5 G OVER 24H
     Route: 042

REACTIONS (10)
  - Drug interaction [Recovered/Resolved]
  - Hallucination [Recovering/Resolving]
  - Diarrhoea [Recovering/Resolving]
  - Delirium [Recovering/Resolving]
  - Fracture [Recovering/Resolving]
  - Serotonin syndrome [Recovered/Resolved]
  - Hypertension [Recovering/Resolving]
  - Respiratory alkalosis [Recovering/Resolving]
  - Fall [Recovered/Resolved]
  - Pelvic fracture [Recovering/Resolving]

NARRATIVE: CASE EVENT DATE: 20150101
